FAERS Safety Report 9158378 (Version 1)
Quarter: 2013Q1

REPORT INFORMATION
  Report Type: Spontaneous
  Country: DK (occurrence: None)
  Receive Date: 20130211
  Receipt Date: 20130211
  Transmission Date: 20140127
  Serious: Yes (Life-Threatening)
  Sender: FDA-Public Use
  Company Number: 2013MA000968

PATIENT
  Age: 48 Year
  Sex: Female

DRUGS (9)
  1. FEVERALL (ACETAMINOPHEN RECTAL SUPPOSITORIES) 650 MG (ALPHARMA) (PARACETAMOL) [Suspect]
     Indication: PROCEDURAL PAIN
     Dosage: NOS
     Route: 042
     Dates: start: 20130111, end: 20130111
  2. MIDAZOLAM (MIDAZOLAM) [Suspect]
     Indication: INDUCTION OF ANAESTHESIA
     Dosage: NOX
     Route: 042
     Dates: start: 20130111, end: 20130111
  3. FENTANYL CITRATE [Suspect]
     Indication: INDUCTION OF ANAESTHESIA
     Route: 042
     Dates: start: 20130111, end: 20130111
  4. PROPOFOL (PROPOFOL) [Suspect]
     Indication: INDUCTION OF ANAESTHESIA
     Dosage: NOS
     Route: 042
     Dates: start: 20130111, end: 20130111
  5. MIOFLEX (SUXAMETHONIUM CHLORIDE) [Suspect]
     Indication: INDUCTION OF ANAESTHESIA
     Dosage: NOS
     Route: 042
     Dates: start: 20130111, end: 20130111
  6. FAULCURIUM [Suspect]
     Indication: NEUROMUSCULAR BLOCKING THERAPY
     Dosage: NOS
     Route: 042
     Dates: start: 20130111, end: 20130111
  7. CEFAZOLIN SODIUM [Suspect]
     Indication: INFECTION PROPHYLAXIS
     Dosage: NOS
     Route: 042
     Dates: start: 20130111, end: 20130111
  8. PATENT BLUE V [Suspect]
     Indication: DIAGNOSTIC PROCEDURE
     Route: 058
     Dates: start: 20130111, end: 20130111
  9. PANTOPRAZOLE [Concomitant]

REACTIONS (1)
  - Anaphylactic shock [None]
